FAERS Safety Report 18959420 (Version 3)
Quarter: 2021Q2

REPORT INFORMATION
  Report Type: Other
  Country: CN (occurrence: CN)
  Receive Date: 20210302
  Receipt Date: 20210622
  Transmission Date: 20210717
  Serious: Yes (Other)
  Sender: FDA-Public Use
  Company Number: CN-ROCHE-2682787

PATIENT
  Age: 57 Year
  Sex: Female
  Weight: 50 kg

DRUGS (2)
  1. AVASTIN [Suspect]
     Active Substance: BEVACIZUMAB
     Route: 041
     Dates: start: 20210222
  2. AVASTIN [Suspect]
     Active Substance: BEVACIZUMAB
     Indication: COLON CANCER
     Route: 041
     Dates: start: 20170804, end: 20201126

REACTIONS (6)
  - Pelvic operation [Not Recovered/Not Resolved]
  - Metabolic disorder [Unknown]
  - Liver disorder [Unknown]
  - Pelvic cyst [Unknown]
  - White blood cell count decreased [Unknown]
  - Bladder cyst [Unknown]
